FAERS Safety Report 9219482 (Version 1)
Quarter: 2013Q2

REPORT INFORMATION
  Report Type: Spontaneous
  Country: US (occurrence: US)
  Receive Date: 20130409
  Receipt Date: 20130409
  Transmission Date: 20140414
  Serious: No
  Sender: FDA-Public Use
  Company Number: US-PFIZER INC-2013108962

PATIENT
  Age: 51 Year
  Sex: Female
  Weight: 77.1 kg

DRUGS (3)
  1. CELEBREX [Suspect]
     Indication: RADICULITIS
     Dosage: 100 MG, UNK
     Route: 048
  2. CELEBREX [Suspect]
     Dosage: 100 MG, 1X/DAY
     Route: 048
     Dates: start: 20130403, end: 20130404
  3. ZANTAC [Concomitant]
     Dosage: 75 MG, AS NEEDED

REACTIONS (6)
  - Off label use [Unknown]
  - Gastritis [Unknown]
  - Radiculitis [Unknown]
  - Gastrointestinal disorder [Unknown]
  - Abdominal pain upper [Unknown]
  - Fear [Unknown]
